FAERS Safety Report 19607629 (Version 1)
Quarter: 2021Q3

REPORT INFORMATION
  Report Type: Spontaneous
  Country: FR (occurrence: FR)
  Receive Date: 20210726
  Receipt Date: 20210726
  Transmission Date: 20211014
  Serious: Yes (Hospitalization)
  Sender: FDA-Public Use
  Company Number: FR-TEVA-2021-FR-1935016

PATIENT
  Age: 81 Year
  Sex: Female

DRUGS (7)
  1. CHLORHYDRATE DE LERCANIDIPINE [Concomitant]
     Active Substance: LERCANIDIPINE HYDROCHLORIDE
     Indication: HYPERTENSION
     Dosage: 10MILLIGRAM
     Route: 048
     Dates: start: 20180101
  2. CALCIDOSE [Concomitant]
     Indication: HYPOCALCAEMIA
     Dosage: 1DOSAGEFORM
     Route: 048
     Dates: start: 20191201
  3. EZETROL 10 MG, COMPRIME [Suspect]
     Active Substance: EZETIMIBE
     Indication: DYSLIPIDAEMIA
     Dosage: 1DOSAGEFORM
     Route: 048
     Dates: start: 20191201
  4. LEVOTHYROXINE SODIQUE [Concomitant]
     Active Substance: LEVOTHYROXINE SODIUM
     Indication: HYPOTHYROIDISM
     Dosage: 50MICROGRAM
     Route: 048
     Dates: start: 20090301
  5. OMEPRAZOLE. [Suspect]
     Active Substance: OMEPRAZOLE
     Indication: GASTRIC ULCER
     Dosage: 1DOSAGEFORM
     Route: 048
     Dates: start: 20180101, end: 20210629
  6. ZYMAD [Concomitant]
     Active Substance: CHOLECALCIFEROL
     Indication: VITAMIN D DEFICIENCY
     Dosage: 1DOSAGEFORM
     Route: 048
     Dates: start: 20191201
  7. PREVISCAN 20 MG, COMPRIME SECABLE [Concomitant]
     Active Substance: FLUINDIONE
     Indication: THROMBOSIS PROPHYLAXIS
     Dosage: 1 + 1/4:UNIT DOSE:25MILLIGRAM
     Route: 048
     Dates: start: 20120101

REACTIONS (1)
  - Pancreatitis acute [Recovered/Resolved]

NARRATIVE: CASE EVENT DATE: 20210625
